APPROVED DRUG PRODUCT: FUROSEMIDE
Active Ingredient: FUROSEMIDE
Strength: 10MG/ML
Dosage Form/Route: INJECTABLE;INJECTION
Application: A208435 | Product #001 | TE Code: AP
Applicant: AREVA PHARMACEUTICALS INC
Approved: Dec 18, 2020 | RLD: No | RS: No | Type: RX